FAERS Safety Report 7911380-4 (Version None)
Quarter: 2011Q4

REPORT INFORMATION
  Report Type: 
  Country: None (occurrence: None)
  Receive Date: 20111114
  Receipt Date: 20111104
  Transmission Date: 20120403
  Serious: Yes (Other)
  Sender: FDA-Public Use
  Company Number: US-ASTELLAS-2011US006709

PATIENT
  Sex: Male

DRUGS (7)
  1. NORVASC [Concomitant]
     Indication: PRODUCT USED FOR UNKNOWN INDICATION
     Dosage: 10 MG, UID/QD
     Route: 065
  2. AMEVIVE [Suspect]
     Indication: RENAL TRANSPLANT
     Dosage: 15 MG, WEEKLY
     Route: 058
     Dates: start: 20100913, end: 20110919
  3. AMEVIVE [Suspect]
     Dosage: 15 MG, MONTHLY
     Route: 058
  4. MYFORTIC [Concomitant]
     Indication: PRODUCT USED FOR UNKNOWN INDICATION
     Dosage: 900 MG, BID
     Route: 065
  5. METOPROLOL [Concomitant]
     Indication: PRODUCT USED FOR UNKNOWN INDICATION
     Dosage: 25 MG, BID
     Route: 065
  6. AMEVIVE [Suspect]
     Dosage: 7.5 MG, UNKNOWN/D
     Route: 042
  7. BACTRIM [Concomitant]
     Indication: PRODUCT USED FOR UNKNOWN INDICATION
     Dosage: 1 DF, UID/QD
     Route: 065

REACTIONS (2)
  - OFF LABEL USE [None]
  - ANTIBODY TEST POSITIVE [None]
